FAERS Safety Report 14019208 (Version 2)
Quarter: 2017Q4

REPORT INFORMATION
  Report Type: Spontaneous
  Country: US (occurrence: US)
  Receive Date: 20170928
  Receipt Date: 20171107
  Transmission Date: 20180321
  Serious: Yes (Hospitalization)
  Sender: FDA-Public Use
  Company Number: US-VERTEX PHARMACEUTICALS-2017-005275

PATIENT
  Sex: Male
  Weight: 79 kg

DRUGS (27)
  1. AZITHROMYCIN ANHYDROUS. [Concomitant]
     Active Substance: AZITHROMYCIN ANHYDROUS
     Dosage: 250 MG, 1 TAB THREE TIMES WEEKLY
     Route: 048
  2. OSELTAMIVIR PHOSPHATE. [Concomitant]
     Active Substance: OSELTAMIVIR PHOSPHATE
     Dosage: 1 CAPSULE, 30 MG, QD
     Dates: start: 20170914
  3. TACROLIMUS. [Concomitant]
     Active Substance: TACROLIMUS
     Dosage: 3 MG, 3 DF, BID
     Route: 048
  4. MYCOPHENOLATE [Concomitant]
     Active Substance: MYCOPHENOLIC ACID
     Dosage: UNK
  5. HUMALOG [Concomitant]
     Active Substance: INSULIN LISPRO
     Dosage: INJECT SUBCUTANEOUSLY AS DIRECTED
     Route: 058
  6. LANTUS [Concomitant]
     Active Substance: INSULIN GLARGINE
     Dosage: INJECT 15 UT, QD
     Route: 058
  7. MAGNESIUM OXIDE. [Concomitant]
     Active Substance: MAGNESIUM OXIDE
     Dosage: 1 TAB, 400 MG, BID
     Route: 048
     Dates: start: 20120110
  8. ALENDRONATE [Concomitant]
     Active Substance: ALENDRONATE SODIUM
     Indication: OSTEOPENIA
  9. ATOVAQUONE. [Concomitant]
     Active Substance: ATOVAQUONE
     Dosage: 10 MILLILITER DAILY
     Route: 048
  10. CREON [Concomitant]
     Active Substance: PANCRELIPASE AMYLASE\PANCRELIPASE LIPASE\PANCRELIPASE PROTEASE
     Dosage: 2 PARTICLES WITH SNACKS, 4-6 WITH MEALS
     Route: 048
  11. KALYDECO [Suspect]
     Active Substance: IVACAFTOR
     Indication: CYSTIC FIBROSIS
     Dosage: 150 MG, BID
     Route: 048
     Dates: start: 20130111
  12. TACROLIMUS. [Concomitant]
     Active Substance: TACROLIMUS
     Dosage: 2.5 MG, 3DF BID
     Route: 048
  13. VITAMIN D                          /00107901/ [Concomitant]
     Active Substance: ERGOCALCIFEROL
     Dosage: 1 CAPSULE, 50000 UT, QD
     Route: 048
     Dates: start: 20170321
  14. PREDNISONE. [Suspect]
     Active Substance: PREDNISONE
     Dosage: 10 MG, QD
     Route: 048
     Dates: start: 20160808
  15. CLINDAMYCIN HCL [Concomitant]
     Active Substance: CLINDAMYCIN HYDROCHLORIDE
     Dosage: 300 MG, 2 CAPSULE 1 HOUR PRIOR TO DENTAL APPT.
     Route: 048
  16. VALGANCICLOVIR HCL [Concomitant]
     Dosage: 1 TAB,450 MG, QD
     Route: 048
     Dates: start: 20120323
  17. ZOLPIDEM TARTRATE. [Concomitant]
     Active Substance: ZOLPIDEM TARTRATE
     Dosage: 1 TB, 10 MG, AT BEDTIME
     Route: 048
  18. LABETALOL HCL [Concomitant]
     Active Substance: LABETALOL HYDROCHLORIDE
     Dosage: 1 TAB,100 MG, EVERY 12 HOURS
     Route: 048
     Dates: start: 20131203
  19. MYCOPHENOLATE MOFETIL. [Concomitant]
     Active Substance: MYCOPHENOLATE MOFETIL
     Dosage: 1 TAB, 500 MG, BID
     Route: 048
  20. OMEGA 3                            /01333901/ [Concomitant]
     Active Substance: FISH OIL\TOCOPHEROL
     Dosage: 1 CAPSULE,1000 MG, BID
     Route: 048
     Dates: start: 20160811
  21. PREDNISONE. [Suspect]
     Active Substance: PREDNISONE
     Indication: INFECTION
     Dosage: UNK
     Route: 048
     Dates: start: 2017
  22. OMEPRAZOLE. [Concomitant]
     Active Substance: OMEPRAZOLE
     Dosage: 1 CAPSULE,40 MG, QD
     Route: 048
     Dates: start: 20120103
  23. VIAGRA [Concomitant]
     Active Substance: SILDENAFIL CITRATE
     Dosage: 1 TAB,100 MG, 1 HOUR BEFORE NEEDED
     Route: 048
     Dates: start: 20170502
  24. VINATE AZ [Concomitant]
     Active Substance: .ALPHA.-TOCOPHEROL ACETATE\.ALPHA.-TOCOPHEROL ACETATE, DL-\.BETA.-CAROTENE\ASCORBIC ACID\BIOTIN\CALCIUM CARBONATE\CALCIUM PANTOTHENATE\CHOLECALCIFEROL\CUPRIC OXIDE\CYANOCOBALAMIN\FOLIC ACID\IRON\MAGNESIUM OXIDE\NIACINAMIDE\PYRIDOXINE HYDROCHLORIDE\RIBOFLAVIN\THIAMINE HYDROCHLORIDE\ZINC OXIDE
     Dosage: 1 DOSAGE FORM, QD
     Dates: start: 20160328
  25. AMLODIPINE BESYLATE. [Concomitant]
     Active Substance: AMLODIPINE BESYLATE
     Dosage: ONE 10 MG TAB, QD
     Route: 048
  26. NYSTATIN. [Concomitant]
     Active Substance: NYSTATIN
     Dosage: 5 MILLILITER, QID
     Route: 048
  27. CALCIUM + VIT D [Concomitant]
     Active Substance: CALCIUM\VITAMIN D
     Dosage: 1 DOSAGE FORM, QD
     Route: 048

REACTIONS (4)
  - Depression [Unknown]
  - Fatigue [Recovering/Resolving]
  - Diabetes mellitus [Recovering/Resolving]
  - Respiratory tract infection bacterial [Recovered/Resolved]

NARRATIVE: CASE EVENT DATE: 2016
